FAERS Safety Report 17823893 (Version 1)
Quarter: 2020Q2

REPORT INFORMATION
  Report Type: Spontaneous
  Country: CA (occurrence: CA)
  Receive Date: 20200526
  Receipt Date: 20200526
  Transmission Date: 20200714
  Serious: Yes (Hospitalization)
  Sender: FDA-Public Use
  Company Number: CA-ROCHE-2604338

PATIENT
  Age: 15 Year
  Sex: Female

DRUGS (9)
  1. VITAMIN C [Concomitant]
     Active Substance: ASCORBIC ACID
  2. THIAMINE HYDROCHLORIDE. [Concomitant]
     Active Substance: THIAMINE HYDROCHLORIDE
  3. RIBOFLAVIN [Concomitant]
     Active Substance: RIBOFLAVIN
  4. VITAMIN A [RETINOL] [Concomitant]
     Active Substance: RETINOL
  5. ERGOCALCIFEROL. [Concomitant]
     Active Substance: ERGOCALCIFEROL
  6. DEXPANTHENOL. [Concomitant]
     Active Substance: DEXPANTHENOL
  7. NICOTINAMIDE [Concomitant]
     Active Substance: NIACINAMIDE
  8. FOLIC ACID. [Concomitant]
     Active Substance: FOLIC ACID
  9. SOMATROPIN. [Suspect]
     Active Substance: SOMATROPIN
     Indication: GROWTH RETARDATION
     Route: 058

REACTIONS (2)
  - Abdominal pain [Unknown]
  - Appendix disorder [Unknown]
